FAERS Safety Report 25557445 (Version 2)
Quarter: 2025Q3

REPORT INFORMATION
  Report Type: Report from Study
  Country: US (occurrence: US)
  Receive Date: 20250715
  Receipt Date: 20250813
  Transmission Date: 20251020
  Serious: Yes (Other)
  Sender: ABBVIE
  Company Number: US-ABBVIE-6367478

PATIENT
  Age: 72 Year
  Sex: Male
  Weight: 63.502 kg

DRUGS (4)
  1. SKYRIZI [Suspect]
     Active Substance: RISANKIZUMAB-RZAA
     Indication: Product used for unknown indication
     Dosage: STRENGTH 150 MG
     Route: 058
     Dates: start: 20250608
  2. METOPROLOL [Concomitant]
     Active Substance: METOPROLOL
     Indication: Heart rate increased
  3. LEVOTHYROXINE [Concomitant]
     Active Substance: LEVOTHYROXINE
     Indication: Hypothyroidism
  4. TYLENOL [Concomitant]
     Active Substance: ACETAMINOPHEN
     Indication: Back pain

REACTIONS (6)
  - Basal cell carcinoma [Not Recovered/Not Resolved]
  - Injection site haemorrhage [Recovered/Resolved]
  - Product distribution issue [Unknown]
  - Tinnitus [Unknown]
  - Ear swelling [Unknown]
  - Device issue [Unknown]

NARRATIVE: CASE EVENT DATE: 20250101
